FAERS Safety Report 9557434 (Version 2)
Quarter: 2013Q4

REPORT INFORMATION
  Report Type: Spontaneous
  Country: US (occurrence: US)
  Receive Date: 20130926
  Receipt Date: 20131022
  Transmission Date: 20140711
  Serious: No
  Sender: FDA-Public Use
  Company Number: US-TEVA-434467USA

PATIENT
  Sex: Female

DRUGS (10)
  1. PROAIR HFA [Suspect]
  2. NASONEX [Concomitant]
  3. TRAZODONE [Concomitant]
     Dosage: 100 MG, FREQUENCY NOT PROVIDED
  4. SERTRALINE [Concomitant]
     Dosage: 100 MG, FREQUENCY NOT PROVIDED
  5. LEVOTHYROXINE [Concomitant]
     Dosage: 125, FREQUENCY NOT PROVIDED
  6. DOXEPIN [Concomitant]
     Dosage: 50 MG, FREQUENCY NOT PROVIDED
  7. TRAMADOL [Concomitant]
     Dosage: 50 MG, FREQUENCY NOT PROVIDED
  8. RANITIDINE [Concomitant]
     Dosage: 300 MG, FREQUENCY NOT PROVIDED
  9. ATENOLOL [Concomitant]
     Dosage: 25 MG, FREQUENCY NOT PROVIDED
  10. NEXIUM [Concomitant]
     Dosage: 40 MG, FREQUENCY NOT PROVIDED

REACTIONS (1)
  - Drug ineffective [Recovered/Resolved]
